FAERS Safety Report 5110281-7 (Version None)
Quarter: 2006Q3

REPORT INFORMATION
  Report Type: 
  Country: None (occurrence: None)
  Receive Date: 20060921
  Receipt Date: 20060814
  Transmission Date: 20061208
  Serious: Yes (Other)
  Sender: FDA-Public Use
  Company Number: DE-GLAXOSMITHKLINE-D0050620A

PATIENT
  Age: 41 Year
  Sex: Male
  Weight: 75 kg

DRUGS (1)
  1. ZIAGEN [Suspect]
     Route: 065
     Dates: start: 20060529, end: 20060719

REACTIONS (8)
  - ARTHRALGIA [None]
  - BRONCHITIS [None]
  - FATIGUE [None]
  - MALAISE [None]
  - MYALGIA [None]
  - NAUSEA [None]
  - OEDEMA [None]
  - PYREXIA [None]
